FAERS Safety Report 6587813-5 (Version None)
Quarter: 2010Q1

REPORT INFORMATION
  Report Type: 
  Country: None (occurrence: None)
  Receive Date: 20100217
  Receipt Date: 20100217
  Transmission Date: 20100710
  Serious: Yes (Life-Threatening)
  Sender: FDA-Public Use
  Company Number: None

PATIENT
  Age: 53 Year
  Sex: Female
  Weight: 77.1115 kg

DRUGS (1)
  1. SEROQUEL XR [Suspect]
     Indication: BIPOLAR DISORDER
     Dates: start: 20070815, end: 20081215

REACTIONS (4)
  - DYSPHAGIA [None]
  - THROAT TIGHTNESS [None]
  - URINARY INCONTINENCE [None]
  - URINE OUTPUT INCREASED [None]
